FAERS Safety Report 10245643 (Version 1)
Quarter: 2014Q2

REPORT INFORMATION
  Report Type: Spontaneous
  Country: US (occurrence: US)
  Receive Date: 20140619
  Receipt Date: 20140619
  Transmission Date: 20141212
  Serious: Yes (Death, Other)
  Sender: FDA-Public Use
  Company Number: US-AMGEN-USASP2014044991

PATIENT
  Age: 79 Year
  Sex: Male

DRUGS (1)
  1. ENBREL [Suspect]
     Indication: PSORIASIS
     Dosage: UNK
     Route: 065
     Dates: start: 20050301, end: 20140529

REACTIONS (4)
  - Death [Fatal]
  - Cardiac valve disease [Unknown]
  - Blood test abnormal [Recovered/Resolved]
  - Psoriasis [Recovered/Resolved]
